FAERS Safety Report 16090504 (Version 3)
Quarter: 2019Q2

REPORT INFORMATION
  Report Type: Report from Study
  Country: IT (occurrence: IT)
  Receive Date: 20190319
  Receipt Date: 20190521
  Transmission Date: 20190711
  Serious: Yes (Hospitalization, Other)
  Sender: FDA-Public Use
  Company Number: IT-MYLANLABS-2019M1024113

PATIENT
  Age: 16 Year
  Sex: Female

DRUGS (4)
  1. SERTRALINE [Suspect]
     Active Substance: SERTRALINE HYDROCHLORIDE
     Indication: MENTAL DISORDER
     Dosage: 200 MILLIGRAM, TOTAL
     Route: 048
     Dates: start: 20180802, end: 20180802
  2. OLANZAPINE. [Concomitant]
     Active Substance: OLANZAPINE
     Indication: MENTAL DISORDER
     Dosage: 7.5 MILLIGRAM
     Route: 048
  3. BRUFEN 600 MG COMPRESSE RIVESTITE [Suspect]
     Active Substance: IBUPROFEN
     Indication: PRODUCT USED FOR UNKNOWN INDICATION
     Dosage: 3.6 GRAM, TOTAL
     Route: 048
     Dates: start: 20180802, end: 20180802
  4. FLUOXETINE [Concomitant]
     Active Substance: FLUOXETINE HYDROCHLORIDE
     Indication: ANOREXIA NERVOSA
     Dosage: 50 MILLIGRAM
     Route: 048

REACTIONS (3)
  - Vomiting [Recovered/Resolved]
  - Intentional self-injury [Recovered/Resolved]
  - Drug abuse [Recovered/Resolved]

NARRATIVE: CASE EVENT DATE: 20180802
